FAERS Safety Report 13673107 (Version 2)
Quarter: 2017Q2

REPORT INFORMATION
  Report Type: Spontaneous
  Country: JP (occurrence: JP)
  Receive Date: 20170621
  Receipt Date: 20170627
  Transmission Date: 20170830
  Serious: Yes (Hospitalization)
  Sender: FDA-Public Use
  Company Number: JP-ORION CORPORATION ORION PHARMA-ENTC2017-0273

PATIENT
  Sex: Male

DRUGS (2)
  1. FP [Concomitant]
     Active Substance: SELEGILINE HYDROCHLORIDE
     Route: 065
  2. STALEVO [Suspect]
     Active Substance: CARBIDOPA\ENTACAPONE\LEVODOPA
     Route: 048

REACTIONS (2)
  - Dizziness postural [Recovered/Resolved]
  - Dizziness [Recovered/Resolved]
